FAERS Safety Report 23187587 (Version 1)
Quarter: 2023Q4

REPORT INFORMATION
  Report Type: Spontaneous
  Country: US (occurrence: None)
  Receive Date: 20231115
  Receipt Date: 20231115
  Transmission Date: 20240110
  Serious: Yes (Death)
  Sender: FDA-Public Use
  Company Number: None

PATIENT
  Age: 79 Year
  Sex: Female

DRUGS (14)
  1. EVEROLIMUS [Suspect]
     Active Substance: EVEROLIMUS
     Indication: Breast cancer female
     Dosage: FREQUENCY : DAILY;?
     Route: 048
     Dates: start: 20230328, end: 20231026
  2. LUMIGAN [Concomitant]
     Active Substance: BIMATOPROST
  3. MELATONIN [Concomitant]
     Active Substance: MELATONIN
  4. METFORMIN [Concomitant]
     Active Substance: METFORMIN HYDROCHLORIDE
  5. XARELTO [Concomitant]
     Active Substance: RIVAROXABAN
  6. ALLEGRA ALLERGY [Concomitant]
  7. ATORVASTATIN [Concomitant]
  8. INCRUSE ELLIPTA [Concomitant]
  9. LEVOTHYROXINE [Concomitant]
  10. NIZORAL [Concomitant]
     Active Substance: KETOCONAZOLE
  11. PEPCID [Concomitant]
     Active Substance: FAMOTIDINE
  12. VENTOLIN HFA INH W/DOS CTR [Concomitant]
  13. DILTIAZEM CD [Concomitant]
  14. VITAMIN D 2,000 IU [Concomitant]

REACTIONS (1)
  - Death [None]

NARRATIVE: CASE EVENT DATE: 20231026
